FAERS Safety Report 5611237-8 (Version None)
Quarter: 2008Q1

REPORT INFORMATION
  Report Type: 
  Country: None (occurrence: None)
  Receive Date: 20080201
  Receipt Date: 20080124
  Transmission Date: 20080703
  Serious: Yes (Death, Hospitalization)
  Sender: FDA-Public Use
  Company Number: CA-ROCHE-538416

PATIENT
  Age: 69 Year
  Sex: Male
  Weight: 67 kg

DRUGS (9)
  1. CAPECITABINE [Suspect]
     Dosage: FORM: PILL. FREQUENCY REPORTED AS X14 DAYS.
     Route: 048
     Dates: start: 20071127, end: 20071221
  2. BEVACIZUMAB [Suspect]
     Route: 042
     Dates: start: 20071127, end: 20071221
  3. IRINOTECAN [Suspect]
     Route: 042
     Dates: start: 20071127, end: 20071221
  4. RAMIPRIL [Concomitant]
     Dates: start: 19820101, end: 20071221
  5. AMILORIDE HYDROCHLORIDE [Concomitant]
     Dosage: TOTAL DAILY DOSE: 5150.
     Dates: start: 19820101, end: 20071221
  6. NOVOLIN 70/30 [Concomitant]
     Dosage: TDD: SLIDING.
     Dates: start: 19820101, end: 20071221
  7. PROCHLORPERAZINE [Concomitant]
     Dates: start: 20071127
  8. 1 CONCOMITANT DRUG [Concomitant]
     Dates: start: 20071218
  9. IMODIUM [Concomitant]
     Dates: start: 20071201, end: 20071221

REACTIONS (1)
  - SMALL INTESTINAL OBSTRUCTION [None]
